FAERS Safety Report 5115110-3 (Version None)
Quarter: 2006Q3

REPORT INFORMATION
  Report Type: 
  Country: None (occurrence: None)
  Receive Date: 20060922
  Receipt Date: 20060911
  Transmission Date: 20061208
  Serious: Yes (Hospitalization, Other)
  Sender: FDA-Public Use
  Company Number: 2006104222

PATIENT
  Age: 2 Year
  Sex: Female

DRUGS (4)
  1. DILANTIN [Suspect]
     Indication: EPILEPSY
     Dosage: (200 MG), INTRAVENOUS
     Route: 042
     Dates: start: 19940816, end: 19940901
  2. SEPTRA [Suspect]
     Indication: URINARY TRACT INFECTION
     Dosage: 15 CC (7.5 CC, 2 IN 1 D)
     Dates: start: 19940801, end: 19940901
  3. DEPEAKENE (VALPROATE SODIUM) [Concomitant]
  4. DURICEF [Concomitant]

REACTIONS (6)
  - DRUG RASH WITH EOSINOPHILIA AND SYSTEMIC SYMPTOMS [None]
  - ERYTHEMA MULTIFORME [None]
  - INJURY [None]
  - PYREXIA [None]
  - STEVENS-JOHNSON SYNDROME [None]
  - TOXIC EPIDERMAL NECROLYSIS [None]
